FAERS Safety Report 5846678-7 (Version None)
Quarter: 2008Q3

REPORT INFORMATION
  Report Type: 
  Country: None (occurrence: None)
  Receive Date: 20080815
  Receipt Date: 20080807
  Transmission Date: 20090109
  Serious: Yes (Other)
  Sender: FDA-Public Use
  Company Number: B0533283A

PATIENT
  Age: 47 Year
  Sex: Female

DRUGS (2)
  1. LAMICTAL [Suspect]
     Indication: TEMPORAL LOBE EPILEPSY
     Dosage: 100MG TWICE PER DAY
     Route: 065
     Dates: start: 20070101
  2. TOPAMAX [Suspect]
     Indication: TEMPORAL LOBE EPILEPSY
     Route: 065
     Dates: start: 20070101

REACTIONS (6)
  - EYE PAIN [None]
  - IMPAIRED DRIVING ABILITY [None]
  - MAJOR DEPRESSION [None]
  - MYOPIA [None]
  - OCULAR HYPERAEMIA [None]
  - VISUAL ACUITY REDUCED [None]
